FAERS Safety Report 21878382 (Version 2)
Quarter: 2023Q1

REPORT INFORMATION
  Report Type: Other
  Country: US (occurrence: None)
  Receive Date: 20230118
  Receipt Date: 20230120
  Transmission Date: 20230417
  Serious: No
  Sender: FDA-Public Use
  Company Number: US-ROCHE-3265124

PATIENT
  Age: 27 Year
  Sex: Female
  Weight: 63.560 kg

DRUGS (4)
  1. OCREVUS [Suspect]
     Active Substance: OCRELIZUMAB
     Indication: Relapsing-remitting multiple sclerosis
     Route: 042
     Dates: start: 202110, end: 202111
  2. OCREVUS [Suspect]
     Active Substance: OCRELIZUMAB
     Dosage: 300MG ON DAY 1 AND DAY 15, THE DATE OF TREATMENT: 28/DEC/2022, 16/MAY/2022, 20/OCT/2021, 23/MAY/2022
     Route: 042
     Dates: start: 2022
  3. TAMIFLU [Suspect]
     Active Substance: OSELTAMIVIR PHOSPHATE
     Indication: H1N1 influenza
     Route: 048
     Dates: start: 20221119, end: 20221123
  4. VESICARE [Concomitant]
     Active Substance: SOLIFENACIN SUCCINATE

REACTIONS (1)
  - H1N1 influenza [Recovered/Resolved]

NARRATIVE: CASE EVENT DATE: 20221119
